FAERS Safety Report 6710116-2 (Version None)
Quarter: 2010Q2

REPORT INFORMATION
  Report Type: 
  Country: None (occurrence: None)
  Receive Date: 20100504
  Receipt Date: 20100427
  Transmission Date: 20101027
  Serious: Yes (Hospitalization)
  Sender: FDA-Public Use
  Company Number: GB-TEVA-185476ISR

PATIENT
  Sex: Male
  Weight: 73 kg

DRUGS (8)
  1. FOLINIC ACID [Suspect]
     Indication: COLORECTAL CANCER
     Route: 042
     Dates: start: 20080915
  2. FLUOROURACIL [Suspect]
     Indication: COLORECTAL CANCER
     Dates: start: 20080915
  3. SUNITINIB MALATE (PLACEBO) [Suspect]
     Indication: COLORECTAL CANCER
     Route: 048
     Dates: start: 20080915
  4. IRINOTECAN HYDROCHLORIDE [Suspect]
     Indication: COLORECTAL CANCER
     Route: 042
     Dates: start: 20080915
  5. ERYTHROMYCIN [Concomitant]
     Dates: start: 20090112, end: 20090119
  6. HYDROCORTISONE [Concomitant]
     Dates: start: 20080624
  7. LOPERAMIDE HYDROCHLORIDE [Concomitant]
     Dates: start: 20080901
  8. CODEINE SULFATE [Concomitant]
     Dates: start: 20080919

REACTIONS (1)
  - PSEUDOMONAL SEPSIS [None]
